FAERS Safety Report 9055903 (Version 1)
Quarter: 2013Q1

REPORT INFORMATION
  Report Type: Spontaneous
  Country: None (occurrence: US)
  Receive Date: 20130206
  Receipt Date: 20130206
  Transmission Date: 20140127
  Serious: No
  Sender: FDA-Public Use
  Company Number: US-ALLERGAN-1200819US

PATIENT
  Age: 86 Year
  Sex: Female

DRUGS (3)
  1. RESTASIS? [Suspect]
     Indication: SJOGREN^S SYNDROME
     Dosage: 2 GTT, BID
     Route: 047
     Dates: start: 20111014
  2. GENTEAL                            /00445101/ [Concomitant]
     Indication: DRY EYE
     Dosage: UNK
     Route: 047
  3. FML OINTMENT 0.1% [Concomitant]
     Indication: PRODUCT USED FOR UNKNOWN INDICATION
     Dosage: UNK
     Route: 047

REACTIONS (3)
  - Eyelids pruritus [Not Recovered/Not Resolved]
  - Burning sensation [Not Recovered/Not Resolved]
  - Drug ineffective [Unknown]
